FAERS Safety Report 10745684 (Version 1)
Quarter: 2015Q1

REPORT INFORMATION
  Report Type: Spontaneous
  Country: US (occurrence: None)
  Receive Date: 20150127
  Receipt Date: 20150127
  Transmission Date: 20150721
  Serious: No
  Sender: FDA-Public Use
  Company Number: None

PATIENT
  Age: 53 Year
  Sex: Male

DRUGS (1)
  1. AFINITOR [Suspect]
     Active Substance: EVEROLIMUS
     Route: 048
     Dates: start: 20141202, end: 20150115

REACTIONS (3)
  - Jaundice [None]
  - Hepatic enzyme increased [None]
  - Rash [None]

NARRATIVE: CASE EVENT DATE: 20150115
